FAERS Safety Report 14955875 (Version 1)
Quarter: 2018Q2

REPORT INFORMATION
  Report Type: Spontaneous
  Country: US (occurrence: US)
  Receive Date: 20180531
  Receipt Date: 20180531
  Transmission Date: 20180711
  Serious: Yes (Other)
  Sender: FDA-Public Use
  Company Number: US-ACCORD-067482

PATIENT
  Age: 49 Year
  Sex: Female

DRUGS (4)
  1. QUETIAPINE. [Suspect]
     Active Substance: QUETIAPINE
     Indication: IMPULSE-CONTROL DISORDER
  2. VENLAFAXINE/VENLAFAXINE HYDROCHLORIDE [Suspect]
     Active Substance: VENLAFAXINE HYDROCHLORIDE
     Indication: IMPULSE-CONTROL DISORDER
  3. AMANTADINE. [Suspect]
     Active Substance: AMANTADINE HYDROCHLORIDE
     Indication: IMPULSE-CONTROL DISORDER
  4. CARBIDOPA/LEVODOPA [Suspect]
     Active Substance: CARBIDOPA\LEVODOPA
     Indication: PARKINSON^S DISEASE

REACTIONS (8)
  - Drug ineffective [Unknown]
  - Impulse-control disorder [None]
  - Condition aggravated [Recovered/Resolved]
  - Compulsive shopping [None]
  - Freezing phenomenon [None]
  - Therapeutic response shortened [None]
  - Alcoholism [None]
  - Dyskinesia [None]
